FAERS Safety Report 5254573-X (Version None)
Quarter: 2007Q1

REPORT INFORMATION
  Report Type: 
  Country: None (occurrence: None)
  Receive Date: 20070302
  Receipt Date: 20070221
  Transmission Date: 20070707
  Serious: Yes (Other)
  Sender: FDA-Public Use
  Company Number: ES-MERCK-0702ESP00049

PATIENT
  Age: 80 Year
  Sex: Male

DRUGS (11)
  1. ZOCOR [Suspect]
     Route: 048
  2. FLUCONAZOLE [Suspect]
     Indication: URINARY TRACT INFECTION FUNGAL
     Route: 065
  3. BISOPROLOL [Concomitant]
     Route: 065
  4. NITROGLYCERIN [Concomitant]
     Route: 065
  5. ENALAPRIL MALEATE [Concomitant]
     Route: 065
  6. ASPIRIN [Concomitant]
     Route: 065
  7. OMEPRAZOLE [Concomitant]
     Route: 065
  8. COLCHICINE [Concomitant]
     Route: 065
  9. TIOTROPIUM BROMIDE [Concomitant]
     Indication: BRONCHITIS
     Route: 065
  10. FLUTICASONE PROPIONATE AND SALMETEROL XINAFOATE [Concomitant]
     Indication: BRONCHITIS
     Route: 065
  11. LEVOFLOXACIN [Concomitant]
     Indication: BRONCHITIS
     Route: 065

REACTIONS (4)
  - CANDIDIASIS [None]
  - DRUG INTERACTION [None]
  - RHABDOMYOLYSIS [None]
  - URINARY TRACT INFECTION FUNGAL [None]
